FAERS Safety Report 5758784-6 (Version None)
Quarter: 2008Q2

REPORT INFORMATION
  Report Type: 
  Country: None (occurrence: None)
  Receive Date: 20080530
  Receipt Date: 20080520
  Transmission Date: 20081010
  Serious: Yes (Life-Threatening, Hospitalization)
  Sender: FDA-Public Use
  Company Number: 2007-00300

PATIENT
  Age: 54 Year
  Sex: Female
  Weight: 66 kg

DRUGS (1)
  1. VELCADE [Suspect]
     Indication: MULTIPLE MYELOMA

REACTIONS (13)
  - AORTIC DILATATION [None]
  - CARDIAC FAILURE CHRONIC [None]
  - CARDIOMYOPATHY [None]
  - CARDIOVASCULAR INSUFFICIENCY [None]
  - DYSPEPSIA [None]
  - GASTROINTESTINAL DISORDER [None]
  - LEFT VENTRICULAR HYPERTROPHY [None]
  - MITRAL VALVE INCOMPETENCE [None]
  - OEDEMA PERIPHERAL [None]
  - PERICARDIAL EFFUSION [None]
  - PNEUMONIA [None]
  - PULMONARY HYPERTENSION [None]
  - TRICUSPID VALVE INCOMPETENCE [None]
